FAERS Safety Report 11145039 (Version 1)
Quarter: 2015Q2

REPORT INFORMATION
  Report Type: Spontaneous
  Country: CA (occurrence: CA)
  Receive Date: 20150526
  Receipt Date: 20150526
  Transmission Date: 20150821
  Serious: Yes (Hospitalization, Other)
  Sender: FDA-Public Use
  Company Number: CA-AMGEN-CANSP2015049936

PATIENT
  Age: 64 Year
  Sex: Male

DRUGS (1)
  1. NPLATE [Suspect]
     Active Substance: ROMIPLOSTIM
     Indication: THROMBOCYTOPENIC PURPURA
     Dosage: UNK
     Route: 065
     Dates: start: 2011

REACTIONS (4)
  - Weight decreased [Unknown]
  - Skin discolouration [Unknown]
  - Fatigue [Unknown]
  - Sarcoma [Unknown]

NARRATIVE: CASE EVENT DATE: 2015
